FAERS Safety Report 25184365 (Version 1)
Quarter: 2025Q2

REPORT INFORMATION
  Report Type: Spontaneous
  Country: US (occurrence: US)
  Receive Date: 20250410
  Receipt Date: 20250410
  Transmission Date: 20250716
  Serious: No
  Sender: BAYER
  Company Number: US-BAYER-2025A046063

PATIENT
  Age: 8 Month
  Sex: Female

DRUGS (2)
  1. CIPROFLOXACIN [Suspect]
     Active Substance: CIPROFLOXACIN
     Indication: Clostridium difficile infection
  2. CIPROFLOXACIN [Suspect]
     Active Substance: CIPROFLOXACIN
     Indication: Urinary tract infection

REACTIONS (2)
  - Product use issue [None]
  - Product prescribing issue [None]
